FAERS Safety Report 6769763-4 (Version None)
Quarter: 2010Q2

REPORT INFORMATION
  Report Type: 
  Country: None (occurrence: None)
  Receive Date: 20100615
  Receipt Date: 20100610
  Transmission Date: 20101027
  Serious: Yes (Other)
  Sender: FDA-Public Use
  Company Number: NL-ROCHE-708623

PATIENT
  Sex: Male
  Weight: 70 kg

DRUGS (1)
  1. ISOTRETINOIN [Suspect]
     Dosage: FREQUENCY: DIALY
     Route: 048
     Dates: start: 20090820

REACTIONS (7)
  - ANORGASMIA [None]
  - ERECTILE DYSFUNCTION [None]
  - FATIGUE [None]
  - LIVER FUNCTION TEST ABNORMAL [None]
  - LOSS OF LIBIDO [None]
  - MOOD SWINGS [None]
  - SOMNOLENCE [None]
